FAERS Safety Report 20206454 (Version 1)
Quarter: 2021Q4

REPORT INFORMATION
  Report Type: Spontaneous
  Country: US (occurrence: US)
  Receive Date: 20211220
  Receipt Date: 20211220
  Transmission Date: 20220303
  Serious: Yes (Hospitalization, Other)
  Sender: FDA-Public Use
  Company Number: US-LUPIN PHARMACEUTICALS INC.-2021-24956

PATIENT
  Age: 64 Year
  Sex: Female

DRUGS (29)
  1. ATOVAQUONE [Suspect]
     Active Substance: ATOVAQUONE
     Indication: Prophylaxis
     Dosage: 1500 MILLIGRAM, QD
     Route: 065
     Dates: start: 201809
  2. ATOVAQUONE [Suspect]
     Active Substance: ATOVAQUONE
     Indication: Babesiosis
     Dosage: 750 MILLIGRAM, BID
     Route: 065
     Dates: start: 20190718, end: 20191013
  3. ATOVAQUONE [Suspect]
     Active Substance: ATOVAQUONE
     Dosage: 1500 MILLIGRAM, QD
     Route: 065
     Dates: start: 20191111
  4. SULFAMETHOXAZOLE AND TRIMETHOPRIM [Suspect]
     Active Substance: SULFAMETHOXAZOLE\TRIMETHOPRIM
     Indication: Prophylaxis
     Dosage: UNK
     Route: 065
     Dates: start: 20191104, end: 20191111
  5. AZITHROMYCIN [Suspect]
     Active Substance: AZITHROMYCIN
     Indication: Babesiosis
     Dosage: 1 GRAM, QD
     Route: 048
     Dates: start: 20190718, end: 20191013
  6. AZITHROMYCIN [Suspect]
     Active Substance: AZITHROMYCIN
     Dosage: 500 MILLIGRAM, QD
     Route: 048
     Dates: start: 20191213
  7. ATOVAQUONE\PROGUANIL HYDROCHLORIDE [Suspect]
     Active Substance: ATOVAQUONE\PROGUANIL HYDROCHLORIDE
     Indication: Prophylaxis
     Dosage: 1 DOSAGE FORM, QD
     Route: 065
     Dates: start: 20190725
  8. ATOVAQUONE\PROGUANIL HYDROCHLORIDE [Suspect]
     Active Substance: ATOVAQUONE\PROGUANIL HYDROCHLORIDE
     Indication: Babesiosis
     Dosage: 4 DOSAGE FORM, QD
     Route: 065
     Dates: start: 20200101
  9. RITUXIMAB [Concomitant]
     Active Substance: RITUXIMAB
     Indication: Acute lymphocytic leukaemia
     Dosage: UNK
     Route: 065
     Dates: start: 2018
  10. BLINATUMOMAB [Concomitant]
     Active Substance: BLINATUMOMAB
     Indication: Acute lymphocytic leukaemia
     Dosage: UNK
     Route: 065
     Dates: start: 20181212
  11. INOTUZUMAB OZOGAMICIN [Concomitant]
     Active Substance: INOTUZUMAB OZOGAMICIN
     Indication: Acute lymphocytic leukaemia
     Dosage: UNK
     Route: 065
     Dates: start: 20190409
  12. CYCLOPHOSPHAMIDE [Concomitant]
     Active Substance: CYCLOPHOSPHAMIDE
     Indication: Acute lymphocytic leukaemia
     Dosage: UNK
     Route: 065
     Dates: start: 20190409
  13. CYCLOPHOSPHAMIDE [Concomitant]
     Active Substance: CYCLOPHOSPHAMIDE
     Indication: Bone marrow conditioning regimen
  14. VINCRISTINE [Concomitant]
     Active Substance: VINCRISTINE
     Indication: Acute lymphocytic leukaemia
     Dosage: UNK
     Route: 065
     Dates: start: 20190409
  15. DEXAMETHASONE [Concomitant]
     Active Substance: DEXAMETHASONE
     Indication: Acute lymphocytic leukaemia
     Dosage: UNK
     Route: 065
     Dates: start: 20190409
  16. FLUDARABINE [Concomitant]
     Active Substance: FLUDARABINE PHOSPHATE
     Indication: Bone marrow conditioning regimen
     Dosage: UNK
     Route: 065
     Dates: start: 2019
  17. TACROLIMUS [Concomitant]
     Active Substance: TACROLIMUS
     Indication: Prophylaxis against graft versus host disease
     Dosage: UNK
     Route: 065
     Dates: start: 2019
  18. TACROLIMUS [Concomitant]
     Active Substance: TACROLIMUS
     Indication: Immunosuppressant drug therapy
  19. MYCOPHENOLATE MOFETIL [Concomitant]
     Active Substance: MYCOPHENOLATE MOFETIL
     Indication: Prophylaxis against graft versus host disease
     Dosage: UNK
     Route: 065
     Dates: start: 2019
  20. MYCOPHENOLATE MOFETIL [Concomitant]
     Active Substance: MYCOPHENOLATE MOFETIL
     Indication: Immunosuppressant drug therapy
  21. ECULIZUMAB [Concomitant]
     Active Substance: ECULIZUMAB
     Indication: Thrombotic microangiopathy
     Dosage: 900 MILLIGRAM
     Route: 065
     Dates: start: 20191125
  22. RUXOLITINIB [Concomitant]
     Active Substance: RUXOLITINIB
     Indication: Prophylaxis against graft versus host disease
     Dosage: 10 MILLIGRAM, BID
     Route: 065
     Dates: start: 201911
  23. PREDNISONE [Concomitant]
     Active Substance: PREDNISONE
     Indication: Prophylaxis against graft versus host disease
     Dosage: 35 MILLIGRAM, QD (0.5 MG/KG)
     Route: 065
     Dates: start: 201911
  24. SIROLIMUS [Concomitant]
     Active Substance: SIROLIMUS
     Indication: Prophylaxis against graft versus host disease
     Dosage: UNK
     Route: 065
  25. CLINDAMYCIN [Concomitant]
     Active Substance: CLINDAMYCIN
     Indication: Pyrexia
     Dosage: 600 MILLIGRAM, TID
     Route: 065
     Dates: start: 20190721
  26. CLINDAMYCIN [Concomitant]
     Active Substance: CLINDAMYCIN
     Dosage: 600 MILLIGRAM, TID
     Route: 065
     Dates: start: 20191217
  27. ACYCLOVIR [Concomitant]
     Active Substance: ACYCLOVIR
     Indication: Prophylaxis
     Dosage: UNK
     Route: 065
     Dates: start: 20191104
  28. VORICONAZOLE [Concomitant]
     Active Substance: VORICONAZOLE
     Indication: Prophylaxis
     Dosage: UNK
     Route: 065
     Dates: start: 20191104
  29. DEFIBROTIDE [Concomitant]
     Active Substance: DEFIBROTIDE (BOVINE)
     Indication: Venoocclusive liver disease
     Dosage: UNK
     Route: 065
     Dates: start: 20191211

REACTIONS (3)
  - Liver function test increased [Unknown]
  - Acute kidney injury [Unknown]
  - Drug resistance [Unknown]

NARRATIVE: CASE EVENT DATE: 20190101
